FAERS Safety Report 8589905-8 (Version None)
Quarter: 2012Q3

REPORT INFORMATION
  Report Type: 
  Country: None (occurrence: None)
  Receive Date: 20120813
  Receipt Date: 20120808
  Transmission Date: 20120928
  Serious: Yes (Other)
  Sender: FDA-Public Use
  Company Number: PHHY2011CA58234

PATIENT
  Sex: Female

DRUGS (2)
  1. GILENYA [Suspect]
     Dosage: 0.5 MG, DAILY
     Route: 048
     Dates: start: 20111201
  2. GILENYA [Suspect]
     Indication: RELAPSING-REMITTING MULTIPLE SCLEROSIS
     Dosage: 0.5 MG, DAILY
     Route: 048
     Dates: start: 20110627

REACTIONS (9)
  - DIZZINESS [None]
  - WHITE BLOOD CELL COUNT DECREASED [None]
  - ORAL HERPES [None]
  - LYMPHOCYTE COUNT DECREASED [None]
  - HYPOAESTHESIA [None]
  - VISUAL IMPAIRMENT [None]
  - NEUTROPHIL COUNT DECREASED [None]
  - BLOOD PRESSURE DECREASED [None]
  - HEART RATE DECREASED [None]
